FAERS Safety Report 17400621 (Version 1)
Quarter: 2020Q1

REPORT INFORMATION
  Report Type: Spontaneous
  Country: BE (occurrence: BE)
  Receive Date: 20200211
  Receipt Date: 20200211
  Transmission Date: 20200409
  Serious: Yes (Hospitalization)
  Sender: FDA-Public Use
  Company Number: BE-SUN PHARMACEUTICAL INDUSTRIES LTD-2019R1-228648

PATIENT
  Age: 48 Year
  Sex: Male

DRUGS (4)
  1. LEVETIRACETAM. [Concomitant]
     Active Substance: LEVETIRACETAM
     Indication: EPILEPSY
     Dosage: UNK
     Route: 065
  2. MEROPENEM. [Suspect]
     Active Substance: MEROPENEM
     Indication: MENINGITIS BACTERIAL
     Dosage: UNK
     Route: 050
  3. VALPROIC ACID. [Interacting]
     Active Substance: VALPROIC ACID
     Indication: EPILEPSY
     Dosage: UNK
     Route: 065
  4. TEMOZOLOMIDE. [Suspect]
     Active Substance: TEMOZOLOMIDE
     Indication: ANAPLASTIC ASTROCYTOMA
     Dosage: UNK
     Route: 065

REACTIONS (7)
  - Campylobacter infection [Recovering/Resolving]
  - Drug interaction [Unknown]
  - Gastroenteritis [Recovering/Resolving]
  - Meningitis bacterial [Recovering/Resolving]
  - Meningitis [Recovering/Resolving]
  - Generalised tonic-clonic seizure [Unknown]
  - Drug level decreased [Unknown]
